FAERS Safety Report 9322389 (Version 1)
Quarter: 2013Q2

REPORT INFORMATION
  Report Type: Report from Study
  Country: SE (occurrence: SE)
  Receive Date: 20130531
  Receipt Date: 20130531
  Transmission Date: 20140414
  Serious: Yes (Other)
  Sender: FDA-Public Use
  Company Number: SE-ABBOTT-13P-150-1094091-00

PATIENT
  Sex: Female

DRUGS (4)
  1. HUMIRA [Suspect]
     Indication: CROHN^S DISEASE
     Dosage: INDUCTION DOSE 160 + 80 MG
     Route: 058
     Dates: start: 20091201, end: 20100118
  2. HUMIRA [Suspect]
     Route: 058
     Dates: start: 20101214
  3. HUMIRA [Suspect]
     Dosage: FOR A PERIOD, DUE TO RELAPSE
     Route: 058
  4. PREDNISOLONE [Concomitant]
     Indication: CROHN^S DISEASE
     Dosage: TAPERING

REACTIONS (2)
  - Diplopia [Unknown]
  - Hypoaesthesia [Unknown]
